FAERS Safety Report 6150919-9 (Version None)
Quarter: 2009Q2

REPORT INFORMATION
  Report Type: 
  Country: None (occurrence: None)
  Receive Date: 20090408
  Receipt Date: 20090324
  Transmission Date: 20091009
  Serious: Yes (Other)
  Sender: FDA-Public Use
  Company Number: MK-6035690

PATIENT
  Age: 42 Year
  Sex: Male
  Weight: 79.6 kg

DRUGS (16)
  1. TEMAZEPAM [Suspect]
     Indication: DRUG USE FOR UNKNOWN INDICATION
     Dosage: 10 MG;DAILY
     Dates: start: 20020704
  2. DIAZEPAM [Suspect]
     Indication: PANIC ATTACK
     Dosage: 5 MG ; 5 MG
     Dates: start: 20011019, end: 20020704
  3. DIAZEPAM [Suspect]
     Indication: PANIC ATTACK
     Dosage: 5 MG ; 5 MG
     Dates: start: 20041202
  4. ARIPIPRAZOLE [Concomitant]
  5. ACETAMINOPHEN W/ CODEINE [Concomitant]
  6. CO-DYRAMOL [Concomitant]
  7. INSULIN HUMAN [Concomitant]
  8. INSULIN DETEMIR [Concomitant]
  9. MIRTAZAPINE [Concomitant]
  10. QVAR 40 [Concomitant]
  11. RISPERDAL [Concomitant]
  12. SALBUTAMOL [Concomitant]
  13. SILDENAFIL CITRATE [Concomitant]
  14. SIMVASTATIN [Concomitant]
  15. TRIPTAFEN /00022601/ [Concomitant]
  16. FLUANXOL /00109702/ [Concomitant]

REACTIONS (5)
  - DEPRESSION [None]
  - DIABETIC COMA [None]
  - HALLUCINATION, AUDITORY [None]
  - PANIC ATTACK [None]
  - TYPE 1 DIABETES MELLITUS [None]
